FAERS Safety Report 23298708 (Version 1)
Quarter: 2023Q4

REPORT INFORMATION
  Report Type: Spontaneous
  Country: ES (occurrence: None)
  Receive Date: 20231214
  Receipt Date: 20231214
  Transmission Date: 20240109
  Serious: Yes (Death, Other)
  Sender: FDA-Public Use
  Company Number: 2023A280432

PATIENT
  Age: 92 Year
  Sex: Female

DRUGS (22)
  1. FULVESTRANT [Suspect]
     Active Substance: FULVESTRANT
     Indication: HER2 negative breast cancer
     Dosage: 500, FROM APR-2018, CONTINUED
     Route: 030
     Dates: start: 201804
  2. FULVESTRANT [Suspect]
     Active Substance: FULVESTRANT
     Indication: Invasive ductal breast carcinoma
     Dosage: 500, FROM APR-2018, CONTINUED
     Route: 030
     Dates: start: 201804
  3. FULVESTRANT [Suspect]
     Active Substance: FULVESTRANT
     Indication: Breast cancer metastatic
     Dosage: 500, FROM APR-2018, CONTINUED
     Route: 030
     Dates: start: 201804
  4. FULVESTRANT [Suspect]
     Active Substance: FULVESTRANT
     Indication: HER2 negative breast cancer
     Dosage: UNK, FROM 2017, ONGOING
     Route: 030
     Dates: start: 2017
  5. FULVESTRANT [Suspect]
     Active Substance: FULVESTRANT
     Indication: Invasive ductal breast carcinoma
     Dosage: UNK, FROM 2017, ONGOING
     Route: 030
     Dates: start: 2017
  6. FULVESTRANT [Suspect]
     Active Substance: FULVESTRANT
     Indication: Breast cancer metastatic
     Dosage: UNK, FROM 2017, ONGOING
     Route: 030
     Dates: start: 2017
  7. CAPECITABINE [Suspect]
     Active Substance: CAPECITABINE
     Indication: Breast cancer metastatic
     Dosage: UNK, FROM AUG-2021 TO DEC-2021
     Route: 048
     Dates: start: 202108, end: 202112
  8. CAPECITABINE [Suspect]
     Active Substance: CAPECITABINE
     Indication: HER2 negative breast cancer
     Dosage: UNK, FROM AUG-2021 TO DEC-2021
     Route: 048
     Dates: start: 202108, end: 202112
  9. CAPECITABINE [Suspect]
     Active Substance: CAPECITABINE
     Indication: Invasive ductal breast carcinoma
     Dosage: UNK, FROM AUG-2021 TO DEC-2021
     Route: 048
     Dates: start: 202108, end: 202112
  10. ZOLEDRONIC ACID [Suspect]
     Active Substance: ZOLEDRONIC ACID
     Indication: Invasive ductal breast carcinoma
     Dosage: UNK, START DATE: 2017
     Dates: start: 2017
  11. ZOLEDRONIC ACID [Suspect]
     Active Substance: ZOLEDRONIC ACID
     Indication: HER2 negative breast cancer
     Dosage: UNK, START DATE: 2017
     Dates: start: 2017
  12. ZOLEDRONIC ACID [Suspect]
     Active Substance: ZOLEDRONIC ACID
     Indication: Breast cancer metastatic
     Dosage: UNK, START DATE: 2017
     Dates: start: 2017
  13. CYCLOPHOSPHAMIDE [Suspect]
     Active Substance: CYCLOPHOSPHAMIDE
     Dosage: UNK, FROM AUG-2021 TO DEC-2021
     Dates: start: 202108, end: 202112
  14. PALBOCICLIB [Suspect]
     Active Substance: PALBOCICLIB
     Indication: Invasive ductal breast carcinoma
     Dosage: 75 MG/DAY X 21 DAYS EVERY 28 DAYS, CONTINUED, START DATE: APR-2018
     Dates: start: 201804
  15. PALBOCICLIB [Suspect]
     Active Substance: PALBOCICLIB
     Indication: Breast cancer metastatic
     Dosage: 75 MG/DAY X 21 DAYS EVERY 28 DAYS, CONTINUED, START DATE: APR-2018
     Dates: start: 201804
  16. PALBOCICLIB [Suspect]
     Active Substance: PALBOCICLIB
     Indication: HER2 negative breast cancer
     Dosage: 75 MG/DAY X 21 DAYS EVERY 28 DAYS, CONTINUED, START DATE: APR-2018
     Dates: start: 201804
  17. PALBOCICLIB [Suspect]
     Active Substance: PALBOCICLIB
     Indication: Invasive ductal breast carcinoma
     Dosage: 100 MG X 21 DAYS EVERY 28 DAYS FROM FEB-2018 TO APR-2018
     Dates: start: 201802, end: 201804
  18. PALBOCICLIB [Suspect]
     Active Substance: PALBOCICLIB
     Indication: Breast cancer metastatic
     Dosage: 100 MG X 21 DAYS EVERY 28 DAYS FROM FEB-2018 TO APR-2018
     Dates: start: 201802, end: 201804
  19. PALBOCICLIB [Suspect]
     Active Substance: PALBOCICLIB
     Indication: HER2 negative breast cancer
     Dosage: 100 MG X 21 DAYS EVERY 28 DAYS FROM FEB-2018 TO APR-2018
     Dates: start: 201802, end: 201804
  20. PALBOCICLIB [Suspect]
     Active Substance: PALBOCICLIB
     Indication: Invasive ductal breast carcinoma
     Dosage: 125 MG X 21 DAYS EVERY 28 DAYS FROM : DEC-2017 TO FEB-2018
     Dates: start: 201712, end: 201802
  21. PALBOCICLIB [Suspect]
     Active Substance: PALBOCICLIB
     Indication: Breast cancer metastatic
     Dosage: 125 MG X 21 DAYS EVERY 28 DAYS FROM : DEC-2017 TO FEB-2018
     Dates: start: 201712, end: 201802
  22. PALBOCICLIB [Suspect]
     Active Substance: PALBOCICLIB
     Indication: HER2 negative breast cancer
     Dosage: 125 MG X 21 DAYS EVERY 28 DAYS FROM : DEC-2017 TO FEB-2018
     Dates: start: 201712, end: 201802

REACTIONS (1)
  - Death [Fatal]
